FAERS Safety Report 5782375-4 (Version None)
Quarter: 2008Q2

REPORT INFORMATION
  Report Type: 
  Country: None (occurrence: None)
  Receive Date: 20080618
  Receipt Date: 20080605
  Transmission Date: 20081010
  Serious: Yes (Life-Threatening, Other)
  Sender: FDA-Public Use
  Company Number: 2008AL006710

PATIENT
  Age: 69 Year
  Sex: Male

DRUGS (8)
  1. AMLODIPINE BESYLATE [Suspect]
     Indication: HYPERTENSION
     Dosage: 5 MG, QD; PO
     Route: 048
     Dates: end: 20060525
  2. CETIRIZINE HCL [Suspect]
     Indication: PRURITUS
     Dosage: 10 MG, QD; PO
     Route: 048
     Dates: start: 20060523
  3. AMBISOME [Concomitant]
  4. CALCICHEW [Concomitant]
  5. DARBEPOETIN [Concomitant]
  6. OMEPRAZOLE [Concomitant]
  7. SODIUM BICARBONATE [Concomitant]
  8. AMBISOME [Concomitant]

REACTIONS (3)
  - ARRHYTHMIA SUPRAVENTRICULAR [None]
  - ATRIAL FLUTTER [None]
  - BLOOD PRESSURE DECREASED [None]
